FAERS Safety Report 5860260-7 (Version None)
Quarter: 2008Q3

REPORT INFORMATION
  Report Type: 
  Country: None (occurrence: None)
  Receive Date: 20080827
  Receipt Date: 20080122
  Transmission Date: 20090109
  Serious: No
  Sender: FDA-Public Use
  Company Number: US-ABBOTT-07P-163-0377870-00

PATIENT
  Sex: Male
  Weight: 100 kg

DRUGS (14)
  1. NIASPAN [Suspect]
     Indication: DRUG USE FOR UNKNOWN INDICATION
     Dosage: ORANGE
     Route: 048
  2. ACETYLSALICYLIC ACID SRT [Concomitant]
     Indication: PREMEDICATION
     Route: 048
  3. ATORVASTATIN CALCIUM [Concomitant]
     Indication: DRUG USE FOR UNKNOWN INDICATION
     Route: 048
  4. FENOFIBRATE [Concomitant]
     Indication: DRUG USE FOR UNKNOWN INDICATION
     Route: 048
  5. ALLOPURINOL [Concomitant]
     Indication: GOUT
     Route: 048
  6. DILTIAZEM HCL [Concomitant]
     Indication: BLOOD PRESSURE
     Route: 048
  7. KLOR-CON [Concomitant]
     Indication: MINERAL SUPPLEMENTATION
     Route: 048
  8. HYDROCHLOROTHIAZIDE [Concomitant]
     Indication: DIURETIC THERAPY
     Route: 048
  9. VALSARTAN [Concomitant]
     Indication: BLOOD PRESSURE
     Route: 048
  10. ZAFIRLUKAST [Concomitant]
     Indication: ASTHMA
     Route: 048
  11. NERVE PILL [Concomitant]
     Indication: DRUG USE FOR UNKNOWN INDICATION
  12. PILL TO MAKE ME SLEEP [Concomitant]
     Indication: DRUG USE FOR UNKNOWN INDICATION
  13. ALBUTEROL [Concomitant]
     Indication: ASTHMA
     Route: 055
  14. BROWN INHALER [Concomitant]
     Indication: ASTHMA
     Route: 055

REACTIONS (3)
  - PARAESTHESIA [None]
  - PRURITUS [None]
  - SCRATCH [None]
